FAERS Safety Report 16722659 (Version 2)
Quarter: 2019Q3

REPORT INFORMATION
  Report Type: Spontaneous
  Country: US (occurrence: US)
  Receive Date: 20190820
  Receipt Date: 20190903
  Transmission Date: 20191005
  Serious: No
  Sender: FDA-Public Use
  Company Number: US-009507513-1908USA006820

PATIENT

DRUGS (3)
  1. EMEND [Suspect]
     Active Substance: APREPITANT
     Dosage: 40 MILLIGRAM, QD
     Route: 048
  2. EMEND [Suspect]
     Active Substance: APREPITANT
     Dosage: 30 MILLIGRAM, QD
     Route: 048
  3. EMEND [Suspect]
     Active Substance: APREPITANT
     Dosage: 30 MILLIGRAM, QD
     Route: 048

REACTIONS (3)
  - Product dose omission [Unknown]
  - Product quality issue [Unknown]
  - No adverse event [Unknown]

NARRATIVE: CASE EVENT DATE: 20190815
